FAERS Safety Report 7118209-5 (Version None)
Quarter: 2010Q4

REPORT INFORMATION
  Report Type: 
  Country: None (occurrence: None)
  Receive Date: 20101123
  Receipt Date: 20101110
  Transmission Date: 20110411
  Serious: Yes (Other)
  Sender: FDA-Public Use
  Company Number: CH-ELI_LILLY_AND_COMPANY-CH201011004855

PATIENT
  Sex: Female

DRUGS (3)
  1. RALOXIFENE HYDROCHLORIDE [Suspect]
     Indication: OSTEOPOROSIS
     Dosage: 1 D/F, UNK
     Route: 048
     Dates: start: 20101019
  2. FLAGYL [Concomitant]
     Indication: VAGINITIS BACTERIAL
     Dosage: 1 D/F, UNK
     Dates: start: 20101019
  3. MONURIL [Concomitant]
     Indication: URINARY TRACT INFECTION
     Dosage: UNK, UNK
     Dates: start: 20101020, end: 20101020

REACTIONS (1)
  - MUSCULOSKELETAL PAIN [None]
